FAERS Safety Report 11024802 (Version 1)
Quarter: 2015Q2

REPORT INFORMATION
  Report Type: Spontaneous
  Country: US (occurrence: US)
  Receive Date: 20150414
  Receipt Date: 20150414
  Transmission Date: 20150821
  Serious: Yes (Hospitalization, Other)
  Sender: FDA-Public Use
  Company Number: US-SHIRE-US201502988

PATIENT
  Age: 4 Decade
  Sex: Female

DRUGS (1)
  1. AMPHETAMINE SALTS [Suspect]
     Active Substance: AMPHETAMINE ASPARTATE\AMPHETAMINE SULFATE\DEXTROAMPHETAMINE SACCHARATE\DEXTROAMPHETAMINE SULFATE
     Indication: DRUG ABUSE
     Dosage: UNK, UNKNOWN (MINIMUM  DAILY DOSE OF 40 MG , AND UP TO 120 MG DAILY-UNKNOWN MGS/FREQUENCIES)
     Route: 048

REACTIONS (5)
  - Drug diversion [Recovered/Resolved]
  - Somatoform disorder skin [Recovered/Resolved]
  - Substance-induced psychotic disorder [Recovered/Resolved]
  - Formication [Recovered/Resolved]
  - Drug abuse [Recovered/Resolved]
